FAERS Safety Report 18684384 (Version 1)
Quarter: 2020Q4

REPORT INFORMATION
  Report Type: Spontaneous
  Country: FR (occurrence: FR)
  Receive Date: 20201230
  Receipt Date: 20201230
  Transmission Date: 20210114
  Serious: Yes (Death)
  Sender: FDA-Public Use
  Company Number: FR-TEVA-2020-FR-1862800

PATIENT
  Age: 60 Year
  Sex: Female

DRUGS (1)
  1. LANSOPRAZOLE. [Suspect]
     Active Substance: LANSOPRAZOLE
     Indication: HIATUS HERNIA
     Dosage: 30 MG
     Route: 048
     Dates: end: 20201116

REACTIONS (4)
  - Hyponatraemia [Fatal]
  - Hypocalcaemia [Fatal]
  - Hypokalaemia [Fatal]
  - Hypomagnesaemia [Fatal]

NARRATIVE: CASE EVENT DATE: 20200719
